FAERS Safety Report 25293810 (Version 1)
Quarter: 2025Q2

REPORT INFORMATION
  Report Type: Spontaneous
  Country: US (occurrence: US)
  Receive Date: 20250510
  Receipt Date: 20250510
  Transmission Date: 20250716
  Serious: No
  Sender: SANOFI AVENTIS
  Company Number: US-SA-2025SA124746

PATIENT
  Sex: Male
  Weight: 18.18 kg

DRUGS (4)
  1. DUPIXENT [Suspect]
     Active Substance: DUPILUMAB
     Indication: Dermatitis atopic
     Dosage: 300 MG, Q4W
     Route: 058
     Dates: start: 202207
  2. SLEEP AID (DIPHENHYDRAMINE HYDROCHLORIDE) [Concomitant]
     Active Substance: DIPHENHYDRAMINE HYDROCHLORIDE
  3. BENADRYL ORIGINAL STRENGTH ITCH STOPPING [Concomitant]
     Active Substance: DIPHENHYDRAMINE HYDROCHLORIDE\ZINC ACETATE
  4. CLARITIN [Concomitant]
     Active Substance: LORATADINE

REACTIONS (1)
  - Urticaria [Unknown]
